FAERS Safety Report 7810436-4 (Version None)
Quarter: 2011Q4

REPORT INFORMATION
  Report Type: 
  Country: None (occurrence: None)
  Receive Date: 20111012
  Receipt Date: 20111005
  Transmission Date: 20120403
  Serious: Yes (Hospitalization)
  Sender: FDA-Public Use
  Company Number: US-MERCK-1102USA01702

PATIENT
  Sex: Female

DRUGS (5)
  1. FOSAMAX [Suspect]
     Indication: OSTEOPENIA
     Route: 048
     Dates: start: 19980101, end: 20090101
  2. FOSAMAX PLUS D [Suspect]
     Indication: OSTEOPENIA
     Route: 065
  3. ALENDRONATE SODIUM [Suspect]
     Indication: OSTEOPENIA
     Route: 065
  4. FOSAMAX [Suspect]
     Indication: OSTEOPOROSIS PROPHYLAXIS
     Route: 048
     Dates: start: 19980101, end: 20090101
  5. TOPROL-XL [Concomitant]
     Indication: HYPERTENSION
     Route: 065
     Dates: start: 20040301

REACTIONS (4)
  - OEDEMA [None]
  - TOOTH DISORDER [None]
  - NECROSIS [None]
  - COMMINUTED FRACTURE [None]
